FAERS Safety Report 12572932 (Version 1)
Quarter: 2016Q3

REPORT INFORMATION
  Report Type: Spontaneous
  Country: US (occurrence: US)
  Receive Date: 20160720
  Receipt Date: 20160720
  Transmission Date: 20161109
  Serious: Yes (Life-Threatening, Hospitalization, Other)
  Sender: FDA-Public Use
  Company Number: US-ACCORD-042464

PATIENT
  Age: 25 Year
  Sex: Female

DRUGS (6)
  1. GABAPENTIN. [Suspect]
     Active Substance: GABAPENTIN
  2. CITALOPRAM [Suspect]
     Active Substance: CITALOPRAM HYDROBROMIDE
  3. CLONAZEPAM. [Suspect]
     Active Substance: CLONAZEPAM
     Route: 048
  4. TRAZODONE [Suspect]
     Active Substance: TRAZODONE HYDROCHLORIDE
  5. DIAMORPHINE [Suspect]
     Active Substance: DIACETYLMORPHINE
     Route: 048
  6. NICOTINE. [Suspect]
     Active Substance: NICOTINE

REACTIONS (5)
  - Hypotension [Recovering/Resolving]
  - Myocardial stunning [Recovering/Resolving]
  - Respiratory failure [Recovering/Resolving]
  - Hypoglycaemia [Unknown]
  - Overdose [Unknown]
